FAERS Safety Report 5221971-X (Version None)
Quarter: 2007Q1

REPORT INFORMATION
  Report Type: 
  Country: None (occurrence: None)
  Receive Date: 20070129
  Receipt Date: 20060221
  Transmission Date: 20070707
  Serious: No
  Sender: FDA-Public Use
  Company Number: US-GLAXOSMITHKLINE-A0594682A

PATIENT
  Age: 1 Year
  Sex: Male

DRUGS (2)
  1. WELLBUTRIN [Suspect]
     Dosage: 100MG UNKNOWN
     Route: 048
  2. WELLBUTRIN XL [Suspect]
     Dosage: 150MG PER DAY
     Dates: end: 20060211

REACTIONS (3)
  - ANOREXIA [None]
  - DIARRHOEA [None]
  - DRUG EXPOSURE VIA BREAST MILK [None]
